FAERS Safety Report 8564119 (Version 3)
Quarter: 2012Q4

REPORT INFORMATION
  Report Type: 
  Country: US (occurrence: US)
  Receive Date: 20120516
  Receipt Date: 20121015
  Transmission Date: 20130627
  Serious: Yes (Other)
  Sender: FDA-Public Use
  Company Number: US-BAYER-2012-047419

PATIENT
  Age: 43 Year
  Sex: Female
  Weight: 77.55 kg

DRUGS (1)
  1. MIRENA [Suspect]
     Indication: CONTRACEPTION
     Dosage: 20 ?g/d, CONT
     Route: 015
     Dates: start: 20110509, end: 20120523

REACTIONS (4)
  - Abdominal distension [Not Recovered/Not Resolved]
  - Weight increased [Not Recovered/Not Resolved]
  - Asthenia [None]
  - Genital haemorrhage [None]
